FAERS Safety Report 23231678 (Version 1)
Quarter: 2023Q4

REPORT INFORMATION
  Report Type: Spontaneous
  Country: US (occurrence: None)
  Receive Date: 20231127
  Receipt Date: 20231127
  Transmission Date: 20240109
  Serious: No
  Sender: FDA-Public Use
  Company Number: None

PATIENT
  Age: 69 Year
  Sex: Male
  Weight: 115.6 kg

DRUGS (9)
  1. COTELLIC [Suspect]
     Active Substance: COBIMETINIB
     Indication: Metastatic malignant melanoma
     Dosage: OTHER QUANTITY : 3 TABLETS;?FREQUENCY : DAILY;?
     Route: 048
     Dates: start: 20231102, end: 20231116
  2. ZELBORAF [Suspect]
     Active Substance: VEMURAFENIB
     Indication: Metastatic malignant melanoma
     Dosage: OTHER QUANTITY : 4 TABLETS;?FREQUENCY : TWICE A DAY;?
     Route: 048
     Dates: start: 20231102, end: 20231116
  3. GEMFIBROZIL [Concomitant]
     Active Substance: GEMFIBROZIL
  4. HYDROXYZINE [Concomitant]
     Active Substance: HYDROXYZINE HYDROCHLORIDE
  5. LEXAPRO [Concomitant]
     Active Substance: ESCITALOPRAM OXALATE
  6. AMLODIPINE BESYLATE [Concomitant]
     Active Substance: AMLODIPINE BESYLATE
  7. BYSTOLIC [Concomitant]
     Active Substance: NEBIVOLOL HYDROCHLORIDE
  8. IBUPROFEN [Concomitant]
     Active Substance: IBUPROFEN
  9. ABIRATERONE [Concomitant]
     Active Substance: ABIRATERONE

REACTIONS (2)
  - Haemorrhage urinary tract [None]
  - Therapy interrupted [None]

NARRATIVE: CASE EVENT DATE: 20231116
